FAERS Safety Report 7623273-0 (Version None)
Quarter: 2011Q3

REPORT INFORMATION
  Report Type: 
  Country: None (occurrence: None)
  Receive Date: 20110720
  Receipt Date: 20110715
  Transmission Date: 20111222
  Serious: Yes (Other)
  Sender: FDA-Public Use
  Company Number: BR-ROCHE-730600

PATIENT
  Sex: Female
  Weight: 84 kg

DRUGS (6)
  1. CLONAZEPAM [Suspect]
     Dosage: OTHER INDICATION: ANXIETY DISORDER
     Route: 048
     Dates: start: 20100920
  2. LEVOZINE [Suspect]
     Indication: INSOMNIA
     Dosage: OTHER INDICATION: ANXIETY DISORDER
     Route: 048
     Dates: start: 20100920
  3. PROZEN [Concomitant]
     Indication: ANXIETY DISORDER
     Route: 048
  4. CLONAZEPAM [Suspect]
     Indication: NERVOUSNESS
     Route: 048
  5. LEVOZINE [Suspect]
     Route: 048
  6. HALDOL [Concomitant]
     Indication: INSOMNIA
     Route: 048

REACTIONS (13)
  - TREMOR [None]
  - WEIGHT INCREASED [None]
  - CHEST PAIN [None]
  - DRUG INEFFECTIVE [None]
  - DIZZINESS [None]
  - HEADACHE [None]
  - INSOMNIA [None]
  - THERAPEUTIC RESPONSE DECREASED [None]
  - SWELLING [None]
  - NAUSEA [None]
  - PRURITUS [None]
  - INFARCTION [None]
  - INCREASED APPETITE [None]
